FAERS Safety Report 21241555 (Version 2)
Quarter: 2022Q3

REPORT INFORMATION
  Report Type: Spontaneous
  Country: US (occurrence: US)
  Receive Date: 20220823
  Receipt Date: 20220829
  Transmission Date: 20221027
  Serious: No
  Sender: FDA-Public Use
  Company Number: US-ELI_LILLY_AND_COMPANY-US202208007643

PATIENT
  Sex: Male

DRUGS (8)
  1. HUMALOG [Suspect]
     Active Substance: INSULIN LISPRO
     Indication: Type 2 diabetes mellitus
     Dosage: 60 U, QID (50-60 UNITS)
     Route: 058
     Dates: start: 2007
  2. HUMALOG [Suspect]
     Active Substance: INSULIN LISPRO
     Indication: Type 2 diabetes mellitus
     Dosage: 60 U, QID (50-60 UNITS)
     Route: 058
     Dates: start: 2007
  3. HUMALOG [Suspect]
     Active Substance: INSULIN LISPRO
     Indication: Type 2 diabetes mellitus
     Dosage: 60 U, QID (50-60 UNITS)
     Route: 058
     Dates: start: 2007
  4. HUMALOG [Suspect]
     Active Substance: INSULIN LISPRO
     Dosage: 60 U, QID (50-60 UNITS)
     Route: 058
  5. HUMALOG [Suspect]
     Active Substance: INSULIN LISPRO
     Dosage: 60 U, QID (50-60 UNITS)
     Route: 058
  6. HUMALOG [Suspect]
     Active Substance: INSULIN LISPRO
     Dosage: 60 U, QID (50-60 UNITS)
     Route: 058
  7. HUMALOG [Suspect]
     Active Substance: INSULIN LISPRO
     Dosage: 60 U, QID (50-60 UNITS)
     Route: 058
  8. TRESIBA [Concomitant]
     Active Substance: INSULIN DEGLUDEC
     Indication: Type 2 diabetes mellitus
     Dosage: UNK UNK, UNKNOWN
     Route: 065

REACTIONS (4)
  - Blood glucose increased [Unknown]
  - Blood glucose increased [Recovering/Resolving]
  - Drug ineffective [Unknown]
  - Product storage error [Unknown]

NARRATIVE: CASE EVENT DATE: 20120101
